FAERS Safety Report 19149543 (Version 3)
Quarter: 2021Q2

REPORT INFORMATION
  Report Type: Report from Study
  Country: FR (occurrence: FR)
  Receive Date: 20210416
  Receipt Date: 20210603
  Transmission Date: 20210717
  Serious: Yes (Death, Life-Threatening, Hospitalization)
  Sender: FDA-Public Use
  Company Number: FR-CELGENEUS-FRA-20210306856

PATIENT
  Age: 67 Year
  Sex: Female
  Weight: 67 kg

DRUGS (3)
  1. FLUDARABINE [Suspect]
     Active Substance: FLUDARABINE PHOSPHATE
     Indication: PLASMA CELL MYELOMA
     Route: 041
     Dates: start: 20200923, end: 20200925
  2. BB2121 [Suspect]
     Active Substance: INVESTIGATIONAL PRODUCT
     Indication: PLASMA CELL MYELOMA
     Route: 041
     Dates: start: 20200928, end: 20200928
  3. CYCLOPHOSPHAMIDE. [Suspect]
     Active Substance: CYCLOPHOSPHAMIDE
     Indication: PLASMA CELL MYELOMA
     Route: 041
     Dates: start: 20200923, end: 20200925

REACTIONS (1)
  - Klebsiella sepsis [Fatal]

NARRATIVE: CASE EVENT DATE: 20210323
